FAERS Safety Report 13426417 (Version 19)
Quarter: 2018Q3

REPORT INFORMATION
  Report Type: Spontaneous
  Country: DE (occurrence: DE)
  Receive Date: 20170411
  Receipt Date: 20180903
  Transmission Date: 20181010
  Serious: Yes (Life-Threatening, Hospitalization, Disabling, Other)
  Sender: FDA-Public Use
  Company Number: DE-BRISTOL-MYERS SQUIBB COMPANY-BMS-2017-028255

PATIENT
  Age: 62 Year
  Sex: Male
  Weight: 82 kg

DRUGS (1)
  1. ELIQUIS [Suspect]
     Active Substance: APIXABAN
     Indication: CEREBROVASCULAR ACCIDENT PROPHYLAXIS
     Dosage: 5 MG, BID
     Route: 065
     Dates: start: 20170125

REACTIONS (20)
  - Lactic acidosis [Not Recovered/Not Resolved]
  - Delirium [Unknown]
  - Haemodialysis [Unknown]
  - Gastrointestinal haemorrhage [Not Recovered/Not Resolved]
  - Haematuria [Unknown]
  - Ileus [Unknown]
  - Pleural fibrosis [Unknown]
  - Influenza like illness [Unknown]
  - Septic shock [Not Recovered/Not Resolved]
  - Transfusion [Unknown]
  - Pneumonia [Unknown]
  - Anxiety disorder [Not Recovered/Not Resolved]
  - Pleural effusion [Not Recovered/Not Resolved]
  - Acute kidney injury [Not Recovered/Not Resolved]
  - Colectomy [Unknown]
  - Polyp [Unknown]
  - Mouth haemorrhage [Unknown]
  - Pharyngeal haemorrhage [Unknown]
  - Anaemia [Recovering/Resolving]
  - Multiple organ dysfunction syndrome [Unknown]

NARRATIVE: CASE EVENT DATE: 201702
